FAERS Safety Report 11054505 (Version 1)
Quarter: 2015Q2

REPORT INFORMATION
  Report Type: Spontaneous
  Country: None (occurrence: None)
  Receive Date: 20150421
  Receipt Date: 20150421
  Transmission Date: 20150821
  Serious: No
  Sender: FDA-Public Use
  Company Number: None

PATIENT
  Age: 79 Year
  Sex: Female
  Weight: 60.33 kg

DRUGS (15)
  1. NORTRIPTYLINE [Suspect]
     Active Substance: NORTRIPTYLINE
     Indication: MUSCLE SPASMS
     Dosage: 1 PILL AT BEDTIME BY MOUTH
     Route: 048
     Dates: start: 20150309, end: 20150311
  2. LEVOXYL [Concomitant]
     Active Substance: LEVOTHYROXINE SODIUM
  3. ATENOLOL. [Concomitant]
     Active Substance: ATENOLOL
  4. ANTI-GAS [Concomitant]
  5. OCUVITE [Concomitant]
     Active Substance: VITAMINS
  6. ENTERIC-COATED ASPIRIN [Concomitant]
     Active Substance: ASPIRIN
  7. MULTI-VIT/MINERAL [Concomitant]
  8. VIT D-3 [Concomitant]
  9. MIRALAX [Concomitant]
     Active Substance: POLYETHYLENE GLYCOL 3350
  10. PAPAYA DIGESTANT TABLETS [Concomitant]
  11. LISINOPRIL. [Concomitant]
     Active Substance: LISINOPRIL
  12. FISH OIL [Concomitant]
     Active Substance: FISH OIL
  13. DULCOLAX [Concomitant]
     Active Substance: BISACODYL OR DOCUSATE SODIUM
  14. SIMVASTATIN. [Concomitant]
     Active Substance: SIMVASTATIN
  15. GLUCOSAMINE SULFATE [Concomitant]
     Active Substance: GLUCOSAMINE SULFATE

REACTIONS (1)
  - Pain [None]

NARRATIVE: CASE EVENT DATE: 20150309
